FAERS Safety Report 4456178-7 (Version None)
Quarter: 2004Q3

REPORT INFORMATION
  Report Type: 
  Country: None (occurrence: None)
  Receive Date: 20040920
  Receipt Date: 20040907
  Transmission Date: 20050211
  Serious: Yes (Hospitalization)
  Sender: FDA-Public Use
  Company Number: 04P-153-0272720-00

PATIENT
  Age: 61 Year
  Sex: Male

DRUGS (7)
  1. TRICOR [Suspect]
     Indication: HYPERLIPIDAEMIA
     Dosage: 100 MG, 3 IN 1 D, PER ORAL
     Route: 048
     Dates: start: 20000627
  2. ACETYLSALICYLIC ACID [Concomitant]
  3. GLIBENCLAMIDE [Concomitant]
  4. METFORMIN HCL [Concomitant]
  5. PARAVASTIN [Concomitant]
  6. NIFEDIPINE [Concomitant]
  7. DIPYRIDAMOLE [Concomitant]

REACTIONS (2)
  - HEPATITIS CHOLESTATIC [None]
  - WEIGHT DECREASED [None]
